FAERS Safety Report 8273560-0 (Version None)
Quarter: 2012Q2

REPORT INFORMATION
  Report Type: 
  Country: None (occurrence: None)
  Receive Date: 20120411
  Receipt Date: 20120116
  Transmission Date: 20120825
  Serious: No
  Sender: FDA-Public Use
  Company Number: US-TEVA-317845USA

PATIENT
  Sex: Female
  Weight: 63.56 kg

DRUGS (1)
  1. NUVIGIL [Suspect]
     Indication: FATIGUE
     Dosage: 150 MILLIGRAM; QAM
     Route: 048
     Dates: end: 20120104

REACTIONS (4)
  - NAUSEA [None]
  - DRUG INEFFECTIVE [None]
  - WEIGHT DECREASED [None]
  - UNDERDOSE [None]
